FAERS Safety Report 8118019-6 (Version None)
Quarter: 2012Q1

REPORT INFORMATION
  Report Type: 
  Country: None (occurrence: None)
  Receive Date: 20120202
  Receipt Date: 20120120
  Transmission Date: 20120608
  Serious: Yes (Other)
  Sender: FDA-Public Use
  Company Number: IT-2011-2999

PATIENT
  Age: 73 Year
  Sex: Female

DRUGS (13)
  1. LANOXIN [Concomitant]
  2. RABEPRAZOLE SODIUM [Concomitant]
  3. TICLID [Concomitant]
  4. LASIX [Concomitant]
  5. NAVELBINE [Suspect]
     Indication: BREAST CANCER
     Dosage: 30 MG IV
     Route: 042
     Dates: start: 20110217
  6. METFORMIN HCL [Concomitant]
  7. TRIMETON [Concomitant]
  8. LEVOTHYROXINE SODIUM [Concomitant]
  9. RAMIPRIL [Concomitant]
  10. HERCEPTIN [Suspect]
     Indication: BREAST CANCER
     Dosage: 400 MG IV
     Route: 042
     Dates: start: 20110217
  11. LEVEMIR [Concomitant]
  12. BISOPROLOL FUMARATE [Concomitant]
  13. NOVORAPID [Concomitant]

REACTIONS (3)
  - TACHYCARDIA [None]
  - HYPERTENSIVE CRISIS [None]
  - CHILLS [None]
